FAERS Safety Report 7786799-5 (Version None)
Quarter: 2011Q3

REPORT INFORMATION
  Report Type: 
  Country: None (occurrence: None)
  Receive Date: 20110929
  Receipt Date: 20110922
  Transmission Date: 20111222
  Serious: Yes (Hospitalization)
  Sender: FDA-Public Use
  Company Number: US-B.I. PHARMACEUTICALS,INC./RIDGEFIELD-2011-BP-17821BP

PATIENT
  Sex: Male
  Weight: 65.32 kg

DRUGS (14)
  1. PRADAXA [Suspect]
     Indication: ATRIAL FIBRILLATION
     Dosage: 150 MG
     Route: 048
     Dates: start: 20110422, end: 20110501
  2. NOVOLOG [Concomitant]
  3. ZOCOR [Concomitant]
     Dosage: 10 MG
     Route: 048
  4. LANTUS [Concomitant]
     Route: 058
  5. ASPIRIN [Concomitant]
  6. FERROUS SULFATE TAB [Concomitant]
     Dosage: 975 MG
     Route: 048
  7. KLOR-CON [Concomitant]
     Indication: CARDIAC DISORDER
  8. SYNTHROID [Concomitant]
     Dosage: 0.025 MG
     Route: 048
  9. TOPROL-XL [Concomitant]
     Dosage: 100 MG
     Route: 048
  10. AMIODARONE HCL [Concomitant]
     Indication: CARDIAC DISORDER
  11. LASIX [Concomitant]
     Indication: CARDIAC DISORDER
  12. METOPROLOL TARTRATE [Concomitant]
     Indication: CARDIAC DISORDER
  13. METFORMIN HCL [Concomitant]
     Indication: DIABETES MELLITUS
     Dosage: 500 MG
     Route: 048
  14. SIMVASTATIN [Concomitant]
     Indication: BLOOD CHOLESTEROL INCREASED

REACTIONS (4)
  - GASTROENTERITIS RADIATION [None]
  - RECTAL HAEMORRHAGE [None]
  - SYNCOPE [None]
  - ANAEMIA [None]
